FAERS Safety Report 5089020-4 (Version None)
Quarter: 2006Q3

REPORT INFORMATION
  Report Type: 
  Country: None (occurrence: None)
  Receive Date: 20060825
  Receipt Date: 20060816
  Transmission Date: 20061208
  Serious: Yes (Congenital Anomaly)
  Sender: FDA-Public Use
  Company Number: 2006CG01363

PATIENT
  Age: 34 Year
  Sex: Female

DRUGS (6)
  1. TENORMIN [Suspect]
     Route: 048
  2. ALDOMET [Suspect]
     Route: 048
  3. ASPEGIC 1000 [Suspect]
     Route: 048
  4. LASILIX [Suspect]
     Route: 048
  5. OROCAL [Suspect]
     Route: 048
  6. NEORECORMON [Suspect]
     Route: 048

REACTIONS (5)
  - ABORTION INDUCED [None]
  - CAUDAL REGRESSION SYNDROME [None]
  - DRUG EXPOSURE DURING PREGNANCY [None]
  - LIMB MALFORMATION [None]
  - PREGNANCY [None]
